FAERS Safety Report 18157574 (Version 1)
Quarter: 2020Q3

REPORT INFORMATION
  Report Type: Report from Study
  Country: CA (occurrence: CA)
  Receive Date: 20200817
  Receipt Date: 20200817
  Transmission Date: 20201103
  Serious: Yes (Hospitalization)
  Sender: FDA-Public Use
  Company Number: CA-BRISTOL-MYERS SQUIBB COMPANY-BMS-2020-044212

PATIENT
  Age: 48 Year
  Sex: Male

DRUGS (3)
  1. HERCEPTIN [Suspect]
     Active Substance: TRASTUZUMAB
     Indication: PRODUCT USED FOR UNKNOWN INDICATION
     Dosage: UNK
     Route: 065
     Dates: start: 20200512
  2. NIVOLUMAB [Suspect]
     Active Substance: NIVOLUMAB
     Indication: GASTRIC CANCER
     Dosage: 216 MILLIGRAM, Q3WK
     Route: 042
     Dates: start: 20200512
  3. NIVOLUMAB [Suspect]
     Active Substance: NIVOLUMAB
     Dosage: 3 MILLIGRAM/KILOGRAM, Q3WK
     Route: 042
     Dates: start: 20200512, end: 20200714

REACTIONS (12)
  - Fatigue [Unknown]
  - Somnolence [Unknown]
  - Nausea [Unknown]
  - Anxiety [Unknown]
  - Pyrexia [Recovered/Resolved]
  - Pain [Unknown]
  - Dyspnoea [Unknown]
  - Oesophagitis [Recovered/Resolved]
  - Depression [Unknown]
  - Off label use [Unknown]
  - Abdominal pain upper [Unknown]
  - Appetite disorder [Unknown]

NARRATIVE: CASE EVENT DATE: 20200513
